FAERS Safety Report 18344112 (Version 1)
Quarter: 2020Q4

REPORT INFORMATION
  Report Type: Spontaneous
  Country: US (occurrence: US)
  Receive Date: 20201002
  Receipt Date: 20201002
  Transmission Date: 20210114
  Serious: Yes (Hospitalization)
  Sender: FDA-Public Use
  Company Number: None

PATIENT
  Age: 61 Year
  Sex: Female
  Weight: 67.9 kg

DRUGS (1)
  1. DOXIL [Suspect]
     Active Substance: DOXORUBICIN HYDROCHLORIDE

REACTIONS (5)
  - Dyspnoea [None]
  - Decreased appetite [None]
  - Metastases to meninges [None]
  - Disease progression [None]
  - Nausea [None]

NARRATIVE: CASE EVENT DATE: 20200101
